FAERS Safety Report 4438448-1 (Version None)
Quarter: 2004Q3

REPORT INFORMATION
  Report Type: 
  Country: None (occurrence: None)
  Receive Date: 20040728
  Receipt Date: 20040324
  Transmission Date: 20050211
  Serious: No
  Sender: FDA-Public Use
  Company Number: USA040363005

PATIENT
  Age: 12 Year
  Sex: Female

DRUGS (1)
  1. STRATTERA [Suspect]
     Indication: DISTURBANCE IN ATTENTION
     Dosage: 18 MG DAY
     Dates: start: 20040321

REACTIONS (5)
  - DECREASED APPETITE [None]
  - FEELING COLD [None]
  - FEELING HOT [None]
  - NAUSEA [None]
  - PALLOR [None]
